FAERS Safety Report 5497528-2 (Version None)
Quarter: 2007Q4

REPORT INFORMATION
  Report Type: 
  Country: None (occurrence: None)
  Receive Date: 20071025
  Receipt Date: 20061204
  Transmission Date: 20080405
  Serious: No
  Sender: FDA-Public Use
  Company Number: A0630232A

PATIENT
  Age: 80 Year
  Sex: Male

DRUGS (4)
  1. ADVAIR DISKUS 100/50 [Suspect]
     Indication: CHRONIC OBSTRUCTIVE PULMONARY DISEASE
     Dosage: 1PUFF TWICE PER DAY
     Route: 055
  2. CARDIZEM [Concomitant]
  3. ALTACE [Concomitant]
  4. ASPIRIN [Concomitant]

REACTIONS (3)
  - DYSPHONIA [None]
  - MUSCULOSKELETAL STIFFNESS [None]
  - MYALGIA [None]
